FAERS Safety Report 9359544 (Version 1)
Quarter: 2013Q2

REPORT INFORMATION
  Report Type: Spontaneous
  Country: US (occurrence: US)
  Receive Date: 20130620
  Receipt Date: 20130620
  Transmission Date: 20140414
  Serious: No
  Sender: FDA-Public Use
  Company Number: US-US-EMD SERONO, INC.-238673K09USA

PATIENT
  Age: 49 Year
  Sex: Male

DRUGS (6)
  1. REBIF [Suspect]
     Indication: MULTIPLE SCLEROSIS
     Route: 065
     Dates: start: 20090624, end: 20090805
  2. REBIF [Suspect]
     Route: 065
     Dates: start: 20090805
  3. CARBAMEZAPINE [Concomitant]
     Indication: PARAESTHESIA
     Route: 065
  4. ALEVE [Concomitant]
     Route: 065
  5. XANAX [Concomitant]
     Route: 065
  6. FIORICET [Concomitant]
     Route: 065

REACTIONS (2)
  - Yellow skin [Unknown]
  - Hepatic enzyme increased [Unknown]
